FAERS Safety Report 7753662-5 (Version None)
Quarter: 2011Q3

REPORT INFORMATION
  Report Type: 
  Country: None (occurrence: None)
  Receive Date: 20110915
  Receipt Date: 20110915
  Transmission Date: 20111222
  Serious: No
  Sender: FDA-Public Use
  Company Number: None

PATIENT
  Age: 82 Year
  Sex: Female
  Weight: 73.935 kg

DRUGS (1)
  1. AVASTIN [Suspect]
     Dates: start: 20090101, end: 20110915

REACTIONS (3)
  - EYE INFECTION BACTERIAL [None]
  - STREPTOCOCCAL INFECTION [None]
  - BLINDNESS UNILATERAL [None]
